FAERS Safety Report 6011673-4 (Version None)
Quarter: 2008Q4

REPORT INFORMATION
  Report Type: 
  Country: None (occurrence: None)
  Receive Date: 20081218
  Receipt Date: 19860603
  Transmission Date: 20090506
  Serious: Yes (Death)
  Sender: FDA-Public Use
  Company Number: SE-ROCHE-860150033001

PATIENT
  Age: 50 Year
  Sex: Female

DRUGS (1)
  1. INTERFERON ALFA-2A [Suspect]
     Indication: RENAL CELL CARCINOMA
     Route: 030
     Dates: start: 19840411, end: 19840504

REACTIONS (2)
  - APATHY [None]
  - DISEASE PROGRESSION [None]
